FAERS Safety Report 4988170-8 (Version None)
Quarter: 2006Q2

REPORT INFORMATION
  Report Type: 
  Country: None (occurrence: None)
  Receive Date: 20060501
  Receipt Date: 20060421
  Transmission Date: 20061013
  Serious: Yes (Hospitalization)
  Sender: FDA-Public Use
  Company Number: US-MERCK-0604USA03643

PATIENT
  Age: 42 Year
  Sex: Male
  Weight: 91 kg

DRUGS (9)
  1. VIOXX [Suspect]
     Route: 048
     Dates: start: 20000801, end: 20040501
  2. LOTREL [Concomitant]
     Route: 065
  3. WELLBUTRIN [Concomitant]
     Route: 065
  4. VITAMIN E [Concomitant]
     Route: 065
  5. VITA C [Concomitant]
     Route: 065
  6. CALCIUM (UNSPECIFIED) [Concomitant]
     Route: 065
  7. ASPIRIN [Concomitant]
     Route: 065
  8. OMEGA-3 [Concomitant]
     Route: 065
  9. NEXIUM [Concomitant]
     Route: 065

REACTIONS (3)
  - ANXIETY [None]
  - CEREBROVASCULAR ACCIDENT [None]
  - DEPRESSION [None]
